FAERS Safety Report 9061320 (Version 3)
Quarter: 2013Q2

REPORT INFORMATION
  Report Type: Report from Study
  Country: JP (occurrence: JP)
  Receive Date: 20130204
  Receipt Date: 20130516
  Transmission Date: 20140414
  Serious: Yes (Death, Hospitalization, Other)
  Sender: FDA-Public Use
  Company Number: JP-ASTELLAS-2013US001200

PATIENT
  Age: 62 Year
  Sex: Male

DRUGS (14)
  1. ERLOTINIB TABLET [Suspect]
     Indication: ADENOCARCINOMA PANCREAS
     Dosage: 100 MG, UID/QD
     Route: 048
     Dates: start: 20120830, end: 20120919
  2. ERLOTINIB TABLET [Suspect]
     Dosage: 100 MG, UID/QD
     Route: 048
     Dates: start: 20121004, end: 20121017
  3. ERLOTINIB TABLET [Suspect]
     Dosage: 50 MG, UID/QD
     Route: 048
     Dates: start: 20121101, end: 20121114
  4. ERLOTINIB TABLET [Suspect]
     Dosage: 50 MG, UID/QD
     Route: 048
     Dates: start: 20121129, end: 20121206
  5. GEMCITABINE                        /01215702/ [Concomitant]
     Indication: ADENOCARCINOMA PANCREAS
     Dosage: 1000 MG/DL, UID/QD
     Route: 042
     Dates: start: 20120830, end: 20120830
  6. GEMCITABINE                        /01215702/ [Concomitant]
     Dosage: 1000 MG/DL, UID/QD
     Route: 042
     Dates: start: 20120913, end: 20120913
  7. GEMCITABINE                        /01215702/ [Concomitant]
     Dosage: 1000 MG/DL, UID/QD
     Route: 042
     Dates: start: 20120920, end: 20120920
  8. GEMCITABINE                        /01215702/ [Concomitant]
     Dosage: 1000 MG/DL, UID/QD
     Route: 042
     Dates: start: 20121004, end: 20121004
  9. GEMCITABINE                        /01215702/ [Concomitant]
     Dosage: 1000 MG/DL, UID/QD
     Route: 042
     Dates: start: 20121011, end: 20121011
  10. GEMCITABINE                        /01215702/ [Concomitant]
     Dosage: 1000 MG/DL, UID/QD
     Route: 042
     Dates: start: 20121025, end: 20121025
  11. GEMCITABINE                        /01215702/ [Concomitant]
     Dosage: 1000 MG/DL, UID/QD
     Route: 042
     Dates: start: 20121101, end: 20121101
  12. GEMCITABINE                        /01215702/ [Concomitant]
     Dosage: 1000 MG/DL, UID/QD
     Route: 042
     Dates: start: 20121115, end: 20121115
  13. GEMCITABINE                        /01215702/ [Concomitant]
     Dosage: 1000 MG/DL, UID/QD
     Route: 042
     Dates: start: 20121129, end: 20121129
  14. WARFARIN SODIUM [Concomitant]
     Indication: PRODUCT USED FOR UNKNOWN INDICATION
     Dosage: 2 MG, UID/QD
     Route: 048
     Dates: end: 20120910

REACTIONS (5)
  - Blood glucose increased [Recovered/Resolved]
  - Malignant neoplasm progression [Fatal]
  - Dermatitis acneiform [Recovered/Resolved]
  - Stomatitis [Recovered/Resolved]
  - Hepatic failure [Not Recovered/Not Resolved]
